FAERS Safety Report 7684862-0 (Version None)
Quarter: 2011Q3

REPORT INFORMATION
  Report Type: 
  Country: None (occurrence: None)
  Receive Date: 20110810
  Receipt Date: 20110726
  Transmission Date: 20111222
  Serious: Yes (Other)
  Sender: FDA-Public Use
  Company Number: AUR-APL-2011-04416

PATIENT
  Sex: Female

DRUGS (1)
  1. GABAPENTIN [Suspect]
     Indication: NEUROPATHY PERIPHERAL
     Dosage: (600 MG, 1 D), PER ORAL
     Route: 048
     Dates: start: 20110401

REACTIONS (3)
  - VISION BLURRED [None]
  - IRIS HYPOPIGMENTATION [None]
  - SOMNOLENCE [None]
